FAERS Safety Report 9674611 (Version 1)
Quarter: 2013Q4

REPORT INFORMATION
  Report Type: Spontaneous
  Country: US (occurrence: US)
  Receive Date: 20131107
  Receipt Date: 20131107
  Transmission Date: 20140711
  Serious: Yes (Hospitalization)
  Sender: FDA-Public Use
  Company Number: US-DRREDDYS-USA/USA/13/0035363

PATIENT
  Age: 61 Year
  Sex: Female
  Weight: 59.02 kg

DRUGS (1)
  1. LANSOPRAZOLE DR CAPSULES 15MG OTC [Suspect]
     Indication: ANTACID THERAPY
     Route: 048
     Dates: start: 20131029

REACTIONS (1)
  - Blood pressure decreased [Unknown]
